FAERS Safety Report 8336095-2 (Version None)
Quarter: 2012Q1

REPORT INFORMATION
  Report Type: 
  Country: None (occurrence: None)
  Receive Date: 20120329
  Receipt Date: 20081229
  Transmission Date: 20120608
  Serious: Yes (Other)
  Sender: FDA-Public Use
  Company Number: PHEH2008US11408

PATIENT
  Sex: Male

DRUGS (1)
  1. EXELON [Suspect]

REACTIONS (4)
  - WEIGHT DECREASED [None]
  - SYNCOPE [None]
  - HAEMATOCHEZIA [None]
  - GASTROINTESTINAL DISORDER [None]
